FAERS Safety Report 7774040-9 (Version None)
Quarter: 2011Q3

REPORT INFORMATION
  Report Type: 
  Country: None (occurrence: None)
  Receive Date: 20110923
  Receipt Date: 20110921
  Transmission Date: 20111222
  Serious: Yes (Death)
  Sender: FDA-Public Use
  Company Number: VE-PFIZER INC-2011209714

PATIENT
  Age: 44 Year
  Sex: Male

DRUGS (5)
  1. LIPITOR [Suspect]
     Indication: MYOCARDIAL INFARCTION
  2. COZAAR [Concomitant]
     Dosage: UNK
     Dates: end: 20100101
  3. LIPITOR [Suspect]
     Indication: HYPERCHOLESTEROLAEMIA
     Dosage: 20 MG, 1X/DAY
     Route: 048
     Dates: start: 20101101, end: 20100101
  4. ATENOLOL [Concomitant]
     Dosage: UNK
     Dates: end: 20100101
  5. ENALAPRIL [Concomitant]
     Dosage: UNK
     Dates: start: 20030101, end: 20100101

REACTIONS (1)
  - MYOCARDIAL INFARCTION [None]
